FAERS Safety Report 18397437 (Version 1)
Quarter: 2020Q4

REPORT INFORMATION
  Report Type: Spontaneous
  Country: US (occurrence: US)
  Receive Date: 20201017
  Receipt Date: 20201017
  Transmission Date: 20210114
  Serious: Yes (Other)
  Sender: FDA-Public Use
  Company Number: None

PATIENT
  Age: 40 Year
  Sex: Female

DRUGS (1)
  1. RAW SUGAR HAND SANITIZER- COCONUT AND LEMON VERBENA [Suspect]
     Active Substance: ALCOHOL

REACTIONS (4)
  - Product odour abnormal [None]
  - Nausea [None]
  - Dizziness [None]
  - Malaise [None]

NARRATIVE: CASE EVENT DATE: 20201008
